FAERS Safety Report 8112826-1 (Version None)
Quarter: 2012Q1

REPORT INFORMATION
  Report Type: 
  Country: None (occurrence: None)
  Receive Date: 20120203
  Receipt Date: 20120127
  Transmission Date: 20120608
  Serious: Yes (Other)
  Sender: FDA-Public Use
  Company Number: US-JNJFOC-20120112629

PATIENT
  Sex: Female
  Weight: 48.99 kg

DRUGS (8)
  1. METHOTREXATE [Concomitant]
     Indication: RHEUMATOID ARTHRITIS
  2. FORTEO [Concomitant]
     Indication: OSTEOARTHRITIS
  3. PREDNISONE TAB [Concomitant]
     Indication: RHEUMATOID ARTHRITIS
  4. SIMPONI [Suspect]
     Indication: RHEUMATOID ARTHRITIS
     Route: 058
     Dates: start: 20110101
  5. ZYLET [Concomitant]
  6. RESTASIS [Concomitant]
     Indication: SJOGREN'S SYNDROME
  7. ARTIFICIAL TEARS NOS [Concomitant]
     Indication: SJOGREN'S SYNDROME
  8. NAPROSYN [Concomitant]
     Indication: RHEUMATOID ARTHRITIS

REACTIONS (5)
  - DEVICE MALFUNCTION [None]
  - DRUG EFFECT DECREASED [None]
  - PAIN [None]
  - HYPERTHYROIDISM [None]
  - DRUG DOSE OMISSION [None]
